FAERS Safety Report 8213494-0 (Version None)
Quarter: 2012Q1

REPORT INFORMATION
  Report Type: 
  Country: None (occurrence: None)
  Receive Date: 20120315
  Receipt Date: 20120312
  Transmission Date: 20120608
  Serious: Yes (Other)
  Sender: FDA-Public Use
  Company Number: US-MERCK-1203USA01481

PATIENT
  Sex: Female

DRUGS (1)
  1. FOSAMAX [Suspect]
     Indication: OSTEOPOROSIS
     Route: 048
     Dates: start: 20010301

REACTIONS (4)
  - FEMUR FRACTURE [None]
  - PATHOLOGICAL FRACTURE [None]
  - DEVICE FAILURE [None]
  - FRACTURE NONUNION [None]
